FAERS Safety Report 10542040 (Version 1)
Quarter: 2014Q4

REPORT INFORMATION
  Report Type: Spontaneous
  Country: DE (occurrence: DE)
  Receive Date: 20141024
  Receipt Date: 20141024
  Transmission Date: 20150529
  Serious: Yes (Hospitalization)
  Sender: FDA-Public Use
  Company Number: DE-TEVA-517060GER

PATIENT
  Age: 75 Year
  Sex: Male

DRUGS (3)
  1. FLUOROURACIL. [Concomitant]
     Active Substance: FLUOROURACIL
     Indication: RECTAL ADENOCARCINOMA
     Dosage: 2400MG/M2 ON D1 AS CONTINUOUS INFUSION FOR 46H; PART OF FOLFOX-6, BIMONTHLY REGIMEN
     Route: 050
  2. OXALIPLATIN. [Suspect]
     Active Substance: OXALIPLATIN
     Indication: RECTAL ADENOCARCINOMA
     Dosage: 80MG/M2 ON D1; PART OF FOLFOX-6, BIMONTHLY REGIMEN
     Route: 042
  3. FOLINIC ACID [Concomitant]
     Active Substance: LEUCOVORIN
     Indication: RECTAL ADENOCARCINOMA
     Dosage: 400MG/M2 ON D1; PART OF FOLFOX-6, BIMONTHLY REGIMEN
     Route: 065

REACTIONS (2)
  - Hypersensitivity vasculitis [Recovering/Resolving]
  - Acute kidney injury [Recovering/Resolving]
